FAERS Safety Report 23155070 (Version 1)
Quarter: 2023Q4

REPORT INFORMATION
  Report Type: Report from Study
  Country: IT (occurrence: IT)
  Receive Date: 20231107
  Receipt Date: 20231107
  Transmission Date: 20240110
  Serious: Yes (Death, Other)
  Sender: FDA-Public Use
  Company Number: IT-JNJFOC-20231106727

PATIENT
  Age: 71 Year
  Sex: Female
  Weight: 58 kg

DRUGS (16)
  1. TALQUETAMAB [Suspect]
     Active Substance: TALQUETAMAB
     Indication: Plasma cell myeloma
     Dosage: DT 0.57 MG
     Route: 058
     Dates: start: 20231005, end: 20231005
  2. TALQUETAMAB [Suspect]
     Active Substance: TALQUETAMAB
     Dosage: DT 0.57 MG
     Route: 058
     Dates: start: 20231013, end: 20231013
  3. TALQUETAMAB [Suspect]
     Active Substance: TALQUETAMAB
     Dosage: DT 3 MG
     Route: 058
     Dates: start: 20231016, end: 20231016
  4. TALQUETAMAB [Suspect]
     Active Substance: TALQUETAMAB
     Dosage: DT 22.8 MG
     Route: 058
     Dates: start: 20231023, end: 20231026
  5. FUROSEMIDE [Concomitant]
     Active Substance: FUROSEMIDE
     Indication: Cardiac disorder
     Dates: end: 20231030
  6. PANTOPRAZOLE [Concomitant]
     Active Substance: PANTOPRAZOLE
     Indication: Palliative care
     Dates: end: 20231017
  7. CANRENONE [Concomitant]
     Active Substance: CANRENONE
     Indication: Cardiac disorder
  8. ALLOPURINOL [Concomitant]
     Active Substance: ALLOPURINOL
     Indication: Palliative care
     Dates: end: 20231017
  9. ACYCLOVIR [Concomitant]
     Active Substance: ACYCLOVIR
     Indication: Prophylaxis
     Dates: end: 20231017
  10. NALOXONE HYDROCHLORIDE\OXYCODONE HYDROCHLORIDE [Concomitant]
     Active Substance: NALOXONE HYDROCHLORIDE\OXYCODONE HYDROCHLORIDE
     Indication: Palliative care
     Dosage: 10/5 MG
     Dates: end: 20231026
  11. METFORMIN HYDROCHLORIDE [Concomitant]
     Active Substance: METFORMIN HYDROCHLORIDE
     Indication: Hypoglycaemia
     Dates: end: 20231017
  12. CARDIOASPIRINA [Concomitant]
     Active Substance: ASPIRIN
     Indication: Cardiac disorder
     Dates: end: 20231014
  13. OLMESARTAN [Concomitant]
     Active Substance: OLMESARTAN
     Indication: Cardiac disorder
     Dates: end: 20231014
  14. BACTRIM [Concomitant]
     Active Substance: SULFAMETHOXAZOLE\TRIMETHOPRIM
     Indication: Prophylaxis
     Dates: end: 20231017
  15. FOLIC ACID [Concomitant]
     Active Substance: FOLIC ACID
     Indication: Palliative care
     Dates: end: 20231017
  16. MORPHINE [Concomitant]
     Active Substance: MORPHINE
     Indication: Palliative care
     Dosage: 1 MG/ML
     Dates: start: 20231026, end: 20231030

REACTIONS (5)
  - Disseminated intravascular coagulation [Fatal]
  - Klebsiella sepsis [Fatal]
  - Plasma cell myeloma [Fatal]
  - Atrial fibrillation [Recovered/Resolved]
  - Cytokine release syndrome [Not Recovered/Not Resolved]

NARRATIVE: CASE EVENT DATE: 20231006
